FAERS Safety Report 19793359 (Version 1)
Quarter: 2021Q3

REPORT INFORMATION
  Report Type: Report from Study
  Country: ES (occurrence: ES)
  Receive Date: 20210906
  Receipt Date: 20210906
  Transmission Date: 20211014
  Serious: Yes (Death)
  Sender: FDA-Public Use
  Company Number: ES-BAUSCH-BL-2021-029297

PATIENT
  Age: 9 Decade
  Sex: Male

DRUGS (4)
  1. MELPHALAN. [Suspect]
     Active Substance: MELPHALAN
     Indication: PLASMA CELL MYELOMA
     Route: 065
  2. VELCADE [Suspect]
     Active Substance: BORTEZOMIB
     Indication: PLASMA CELL MYELOMA
     Route: 065
  3. DARATUMUMAB [Suspect]
     Active Substance: DARATUMUMAB
     Indication: PLASMA CELL MYELOMA
     Dosage: WEEK 1?1, WEEK 2?1, WEEK 3?1, WEEK 4?1, WEEK 5?1, WEEK 6?1, WEEK 7?1, WEEK 10?1, WEEK 13?1, WEEK 16?
     Route: 065
  4. PREDNISOLONE. [Suspect]
     Active Substance: PREDNISOLONE
     Indication: PLASMA CELL MYELOMA
     Route: 065

REACTIONS (3)
  - Respiratory tract infection [Fatal]
  - Off label use [Unknown]
  - Product use issue [Unknown]
